FAERS Safety Report 16932069 (Version 1)
Quarter: 2019Q4

REPORT INFORMATION
  Report Type: Spontaneous
  Country: US (occurrence: US)
  Receive Date: 20191017
  Receipt Date: 20191017
  Transmission Date: 20200122
  Serious: No
  Sender: FDA-Public Use
  Company Number: US-CHILTERN-US-2019-000733

PATIENT

DRUGS (3)
  1. MURO 128 [Concomitant]
     Active Substance: SODIUM CHLORIDE
     Dosage: 1 GTT, QID
     Route: 047
  2. RHOPRESSA [Suspect]
     Active Substance: NETARSUDIL MESYLATE
     Indication: GLAUCOMA
     Dosage: UNK (2 TO 3 DROPS) GTT, BID
     Route: 047
     Dates: start: 201908, end: 201908
  3. PREDNISONE. [Concomitant]
     Active Substance: PREDNISONE
     Dosage: 1 GTT, QID
     Route: 047

REACTIONS (2)
  - Drug intolerance [Recovered/Resolved]
  - Off label use [Unknown]

NARRATIVE: CASE EVENT DATE: 201908
